FAERS Safety Report 8431184-6 (Version None)
Quarter: 2012Q2

REPORT INFORMATION
  Report Type: 
  Country: None (occurrence: None)
  Receive Date: 20120612
  Receipt Date: 20120607
  Transmission Date: 20120825
  Serious: Yes (Hospitalization)
  Sender: FDA-Public Use
  Company Number: PHHY2012KR048958

PATIENT
  Age: 51 Year
  Sex: Male

DRUGS (4)
  1. ISONIAZID [Suspect]
     Indication: PULMONARY TUBERCULOSIS
     Dosage: 300 MG, PER DAY
  2. PYRAZINAMIDE [Concomitant]
     Indication: PULMONARY TUBERCULOSIS
     Dosage: 1500 MG, PER DAY
  3. RIFAMPICIN [Concomitant]
     Indication: PULMONARY TUBERCULOSIS
     Dosage: 600 MG, PER DAY
  4. ETHAMBUTOL HYDROCHLORIDE [Concomitant]
     Indication: PULMONARY TUBERCULOSIS
     Dosage: 800 MG, PER DAY

REACTIONS (18)
  - BLOOD ALKALINE PHOSPHATASE INCREASED [None]
  - DIPLOPIA [None]
  - NORMOCHROMIC NORMOCYTIC ANAEMIA [None]
  - RASH ERYTHEMATOUS [None]
  - ANISOCYTOSIS [None]
  - ASPARTATE AMINOTRANSFERASE INCREASED [None]
  - RASH MACULO-PAPULAR [None]
  - HEADACHE [None]
  - ALANINE AMINOTRANSFERASE INCREASED [None]
  - GLYCOSURIA [None]
  - HYPERSENSITIVITY [None]
  - MALAISE [None]
  - INFLUENZA LIKE ILLNESS [None]
  - THROMBOCYTOPENIA [None]
  - RASH PRURITIC [None]
  - VITH NERVE PARALYSIS [None]
  - PYREXIA [None]
  - BLOOD BILIRUBIN INCREASED [None]
